FAERS Safety Report 10186335 (Version 1)
Quarter: 2014Q2

REPORT INFORMATION
  Report Type: Spontaneous
  Country: US (occurrence: US)
  Receive Date: 20140521
  Receipt Date: 20140521
  Transmission Date: 20141212
  Serious: No
  Sender: FDA-Public Use
  Company Number: US-ASTRAZENECA-2014SE08111

PATIENT
  Age: 70 Year
  Sex: Female
  Weight: 81.6 kg

DRUGS (4)
  1. PULMICORT FLEXHALER [Suspect]
     Indication: ASTHMA
     Dosage: 180 MCG, 2 PUFFS DAILY
     Route: 055
  2. ALBUTEROL [Concomitant]
  3. HIGH BLOOD PRESSURE MEDICATIONS [Concomitant]
  4. TOPAMAX [Concomitant]

REACTIONS (2)
  - Bronchitis [Unknown]
  - Dysphonia [Unknown]
